FAERS Safety Report 11756360 (Version 1)
Quarter: 2015Q4

REPORT INFORMATION
  Report Type: Spontaneous
  Country: US (occurrence: US)
  Receive Date: 20151119
  Receipt Date: 20151119
  Transmission Date: 20160304
  Serious: No
  Sender: FDA-Public Use
  Company Number: US-ALLERGAN-1513834US

PATIENT
  Sex: Female

DRUGS (2)
  1. COMBIGAN [Suspect]
     Active Substance: BRIMONIDINE TARTRATE\TIMOLOL MALEATE
     Dosage: 2 GTT, BID
     Route: 047
     Dates: start: 20150713
  2. COMBIGAN [Suspect]
     Active Substance: BRIMONIDINE TARTRATE\TIMOLOL MALEATE
     Indication: PRODUCT USED FOR UNKNOWN INDICATION
     Dosage: 2 GTT, BID
     Route: 047
     Dates: start: 20150713

REACTIONS (10)
  - Bradyphrenia [Unknown]
  - Chest pain [Unknown]
  - Peripheral coldness [Unknown]
  - Headache [Unknown]
  - Heart rate decreased [Unknown]
  - Vision blurred [Unknown]
  - Dysgeusia [Unknown]
  - Hypotension [Unknown]
  - Dry mouth [Unknown]
  - Irritability [Unknown]
